FAERS Safety Report 10619367 (Version 2)
Quarter: 2015Q2

REPORT INFORMATION
  Report Type: Spontaneous
  Country: US (occurrence: US)
  Receive Date: 20141202
  Receipt Date: 20150604
  Transmission Date: 20150821
  Serious: Yes (Hospitalization, Other)
  Sender: FDA-Public Use
  Company Number: US-GLAXOSMITHKLINE-US2014GSK027178

PATIENT
  Age: 66 Year
  Sex: Male

DRUGS (8)
  1. SPIRIVA [Concomitant]
     Active Substance: TIOTROPIUM BROMIDE MONOHYDRATE
  2. CARVEDILOL. [Concomitant]
     Active Substance: CARVEDILOL
  3. VITAMINS NOS [Concomitant]
     Active Substance: VITAMINS
  4. NEBULIZER (NAME UNKNOWN) [Concomitant]
     Route: 055
  5. FAMOTIDINE. [Concomitant]
     Active Substance: FAMOTIDINE
  6. ALLOPURINOL. [Concomitant]
     Active Substance: ALLOPURINOL
  7. POTASSIUM [Concomitant]
     Active Substance: POTASSIUM
  8. ADVAIR DISKUS [Suspect]
     Active Substance: FLUTICASONE PROPIONATE\SALMETEROL XINAFOATE
     Indication: CHRONIC OBSTRUCTIVE PULMONARY DISEASE
     Dosage: UNK UNK, BID
     Route: 055
     Dates: start: 2010

REACTIONS (5)
  - Oxygen saturation decreased [Recovering/Resolving]
  - Body temperature decreased [Recovering/Resolving]
  - Malaise [Recovering/Resolving]
  - Acute kidney injury [Recovering/Resolving]
  - Pneumonia [Recovering/Resolving]

NARRATIVE: CASE EVENT DATE: 201304
